FAERS Safety Report 11762985 (Version 1)
Quarter: 2015Q4

REPORT INFORMATION
  Report Type: Spontaneous
  Country: US (occurrence: US)
  Receive Date: 20151120
  Receipt Date: 20151120
  Transmission Date: 20160304
  Serious: No
  Sender: FDA-Public Use
  Company Number: US-ELI_LILLY_AND_COMPANY-US201210006540

PATIENT
  Age: 82 Year
  Sex: Female

DRUGS (3)
  1. FORTEO [Suspect]
     Active Substance: TERIPARATIDE
     Indication: OSTEOPOROSIS
     Dosage: 20 UG, QD
  2. FORTEO [Suspect]
     Active Substance: TERIPARATIDE
     Dosage: 20 UG, QD
  3. FORTEO [Suspect]
     Active Substance: TERIPARATIDE
     Dosage: 20 UG, QD

REACTIONS (12)
  - Hearing impaired [Unknown]
  - Injection site erythema [Unknown]
  - Hyperhidrosis [Unknown]
  - Drug dose omission [Unknown]
  - Memory impairment [Unknown]
  - Eye disorder [Unknown]
  - Pruritus [Unknown]
  - Overdose [Unknown]
  - Cystitis [Unknown]
  - Back pain [Unknown]
  - Daydreaming [Unknown]
  - Kidney infection [Unknown]

NARRATIVE: CASE EVENT DATE: 201210
